FAERS Safety Report 8488240-6 (Version None)
Quarter: 2012Q3

REPORT INFORMATION
  Report Type: 
  Country: None (occurrence: None)
  Receive Date: 20120705
  Receipt Date: 20120629
  Transmission Date: 20120928
  Serious: No
  Sender: FDA-Public Use
  Company Number: US-BAYER-2012-065734

PATIENT
  Age: 70 Year
  Sex: Female
  Weight: 77.098 kg

DRUGS (5)
  1. ALEVE (CAPLET) [Suspect]
     Indication: ARTHRITIS
     Dosage: 1 DF, BID
     Route: 048
     Dates: start: 20120601
  2. ASPIRIN [Concomitant]
  3. ONE-A-DAY ESSENTIAL [Concomitant]
  4. BONE MEDICINE [Concomitant]
  5. BLOOD PRESSURE MEDICATION (NOS) [Concomitant]

REACTIONS (1)
  - NO ADVERSE EVENT [None]
